FAERS Safety Report 20707902 (Version 1)
Quarter: 2022Q2

REPORT INFORMATION
  Report Type: Spontaneous
  Country: US (occurrence: US)
  Receive Date: 20220414
  Receipt Date: 20220414
  Transmission Date: 20220721
  Serious: Yes (Life-Threatening, Hospitalization)
  Sender: FDA-Public Use
  Company Number: US-JNJFOC-20220409293

PATIENT
  Age: 25 Year
  Sex: Female

DRUGS (1)
  1. IMODIUM [Suspect]
     Active Substance: LOPERAMIDE HYDROCHLORIDE
     Indication: Product used for unknown indication
     Dosage: MORE THAN 100 PILLS OF LOPERAMIDE/DAY FOR LAST 4 YEARS
     Route: 065

REACTIONS (4)
  - Ventricular dysfunction [Unknown]
  - Drug abuse [Recovered/Resolved]
  - Toxicity to various agents [Recovered/Resolved]
  - Torsade de pointes [Recovered/Resolved]
